FAERS Safety Report 6680846-X (Version None)
Quarter: 2010Q2

REPORT INFORMATION
  Report Type: 
  Country: None (occurrence: None)
  Receive Date: 20100414
  Receipt Date: 20100405
  Transmission Date: 20101027
  Serious: Yes (Death, Hospitalization)
  Sender: FDA-Public Use
  Company Number: JP-JNJFOC-20100308694

PATIENT
  Sex: Female

DRUGS (12)
  1. CRAVIT [Suspect]
     Indication: UPPER RESPIRATORY TRACT INFLAMMATION
     Route: 048
  2. CRAVIT [Suspect]
     Indication: PYREXIA
     Route: 048
  3. CRAVIT [Suspect]
     Indication: NASOPHARYNGITIS
     Route: 048
  4. SELBEX [Suspect]
     Indication: UPPER RESPIRATORY TRACT INFLAMMATION
     Route: 048
  5. SELBEX [Suspect]
     Indication: PYREXIA
     Route: 048
  6. SELBEX [Suspect]
     Indication: NASOPHARYNGITIS
     Route: 048
  7. MUCODYNE [Suspect]
     Indication: UPPER RESPIRATORY TRACT INFLAMMATION
     Route: 048
  8. MUCODYNE [Suspect]
     Indication: PYREXIA
     Route: 048
  9. MUCODYNE [Suspect]
     Indication: NASOPHARYNGITIS
     Route: 048
  10. DICLOFENAC SODIUM [Suspect]
     Indication: UPPER RESPIRATORY TRACT INFLAMMATION
     Route: 048
  11. DICLOFENAC SODIUM [Suspect]
     Indication: PYREXIA
     Route: 048
  12. DICLOFENAC SODIUM [Suspect]
     Indication: NASOPHARYNGITIS
     Route: 048

REACTIONS (2)
  - HEPATIC FUNCTION ABNORMAL [None]
  - TOXIC EPIDERMAL NECROLYSIS [None]
